FAERS Safety Report 7546455-5 (Version None)
Quarter: 2011Q2

REPORT INFORMATION
  Report Type: 
  Country: None (occurrence: None)
  Receive Date: 20110607
  Receipt Date: 20110523
  Transmission Date: 20111010
  Serious: Yes (Hospitalization, Other)
  Sender: FDA-Public Use
  Company Number: 2011MA006341

PATIENT
  Age: 15 Year
  Sex: Male
  Weight: 54.2 kg

DRUGS (2)
  1. METHYLPHENIDATE [Concomitant]
  2. SERTRALINE HYDROCHLORIDE [Suspect]
     Indication: AGGRESSION
     Dosage: 50 MG OD,

REACTIONS (5)
  - INSOMNIA [None]
  - LOGORRHOEA [None]
  - IRRITABILITY [None]
  - REPETITIVE SPEECH [None]
  - ATTENTION DEFICIT/HYPERACTIVITY DISORDER [None]
